FAERS Safety Report 8962683 (Version 1)
Quarter: 2012Q4

REPORT INFORMATION
  Report Type: 
  Country: MX (occurrence: MX)
  Receive Date: 20121214
  Receipt Date: 20121214
  Transmission Date: 20130627
  Serious: Yes (Death)
  Sender: FDA-Public Use
  Company Number: PHHY2012MX114987

PATIENT
  Age: 86 Year
  Sex: Female

DRUGS (8)
  1. EXELON PATCH [Suspect]
     Indication: DEMENTIA ALZHEIMER^S TYPE
     Dosage: 4.6 mg, daily
     Route: 062
     Dates: start: 20121107
  2. METFORMIN [Concomitant]
     Dosage: 2.5 DF, daily
  3. PRAVASTATIN [Concomitant]
     Dosage: 2 DF, daily
  4. BEZAFIBRATE [Concomitant]
     Dosage: 2 DF, daily
  5. ENALAPRIL [Concomitant]
     Dosage: 1 DF, daily
  6. LOSARTAN [Concomitant]
     Dosage: 2 DF, daily
  7. CO-ENZYME [Concomitant]
     Dosage: 1 DF, daily
  8. ASPIRINA [Concomitant]
     Dosage: 1 DF, daily

REACTIONS (2)
  - Respiratory arrest [Fatal]
  - Feeling abnormal [Unknown]
